FAERS Safety Report 7413838-3 (Version None)
Quarter: 2011Q2

REPORT INFORMATION
  Report Type: 
  Country: None (occurrence: None)
  Receive Date: 20110413
  Receipt Date: 20110330
  Transmission Date: 20111010
  Serious: Yes (Death)
  Sender: FDA-Public Use
  Company Number: CO-WATSON-2011-05097

PATIENT
  Age: 6 Month
  Sex: Male

DRUGS (1)
  1. IBUPROFEN [Suspect]
     Indication: OTITIS MEDIA ACUTE
     Dosage: UNK
     Route: 065

REACTIONS (2)
  - NECROTISING FASCIITIS [None]
  - MULTI-ORGAN FAILURE [None]
